FAERS Safety Report 5019831-2 (Version None)
Quarter: 2006Q2

REPORT INFORMATION
  Report Type: 
  Country: None (occurrence: None)
  Receive Date: 20060605
  Receipt Date: 20060605
  Transmission Date: 20061013
  Serious: Yes (Hospitalization)
  Sender: FDA-Public Use
  Company Number: None

PATIENT
  Age: 77 Year
  Sex: Male

DRUGS (1)
  1. TARCEVA [Suspect]
     Indication: PROSTATE CANCER
     Dosage: 150 MG QD
     Dates: start: 20060426

REACTIONS (2)
  - DEHYDRATION [None]
  - HAEMATURIA [None]
